FAERS Safety Report 14913643 (Version 1)
Quarter: 2018Q2

REPORT INFORMATION
  Report Type: Spontaneous
  Country: US (occurrence: US)
  Receive Date: 20180518
  Receipt Date: 20180518
  Transmission Date: 20180711
  Serious: Yes (Other)
  Sender: FDA-Public Use
  Company Number: US-JNJFOC-20180522194

PATIENT
  Age: 83 Year
  Sex: Female
  Weight: 56 kg

DRUGS (17)
  1. IMBRUVICA [Suspect]
     Active Substance: IBRUTINIB
     Indication: B-CELL SMALL LYMPHOCYTIC LYMPHOMA
     Route: 048
     Dates: end: 20180503
  2. PROCHLORPERAZINE. [Concomitant]
     Active Substance: PROCHLORPERAZINE
  3. ALBUTEROL SULFATE. [Concomitant]
     Active Substance: ALBUTEROL SULFATE
  4. ESTRADIOL. [Concomitant]
     Active Substance: ESTRADIOL
  5. LASIX [Concomitant]
     Active Substance: FUROSEMIDE
  6. COZAAR [Concomitant]
     Active Substance: LOSARTAN POTASSIUM
  7. NASONEX [Concomitant]
     Active Substance: MOMETASONE FUROATE
  8. ASMANEX HFA [Concomitant]
     Active Substance: MOMETASONE FUROATE
  9. PRILOSEC [Concomitant]
     Active Substance: OMEPRAZOLE MAGNESIUM
  10. ATENOLOL. [Concomitant]
     Active Substance: ATENOLOL
  11. ATORVASTATIN [Concomitant]
     Active Substance: ATORVASTATIN
  12. SPIRIVA [Concomitant]
     Active Substance: TIOTROPIUM BROMIDE MONOHYDRATE
  13. MAXZIDE [Concomitant]
     Active Substance: HYDROCHLOROTHIAZIDE\TRIAMTERENE
  14. MUCINEX [Concomitant]
     Active Substance: GUAIFENESIN
  15. ONDANSETRON [Concomitant]
     Active Substance: ONDANSETRON
  16. ACYCLOVIR. [Concomitant]
     Active Substance: ACYCLOVIR
  17. POTASSIUM [Concomitant]
     Active Substance: POTASSIUM

REACTIONS (1)
  - Biopsy lung [Unknown]

NARRATIVE: CASE EVENT DATE: 20180508
